FAERS Safety Report 23866180 (Version 1)
Quarter: 2024Q2

REPORT INFORMATION
  Report Type: Report from Study
  Country: US (occurrence: US)
  Receive Date: 20240517
  Receipt Date: 20240517
  Transmission Date: 20240715
  Serious: Yes (Other)
  Sender: FDA-Public Use
  Company Number: US-ABBVIE-5760122

PATIENT
  Age: 70 Year
  Sex: Female

DRUGS (1)
  1. HUMIRA [Suspect]
     Active Substance: ADALIMUMAB
     Indication: Psoriatic arthropathy
     Route: 058
     Dates: start: 20231210

REACTIONS (3)
  - Embolic stroke [Not Recovered/Not Resolved]
  - Trigger finger [Not Recovered/Not Resolved]
  - Thrombosis [Not Recovered/Not Resolved]

NARRATIVE: CASE EVENT DATE: 20240513
